FAERS Safety Report 24562828 (Version 1)
Quarter: 2024Q4

REPORT INFORMATION
  Report Type: Report from Study
  Country: US (occurrence: US)
  Receive Date: 20241029
  Receipt Date: 20241029
  Transmission Date: 20250115
  Serious: Yes (Other)
  Sender: ABBVIE
  Company Number: US-ABBVIE-5979220

PATIENT
  Sex: Female
  Weight: 77.11 kg

DRUGS (2)
  1. SYNTHROID [Suspect]
     Active Substance: LEVOTHYROXINE SODIUM
     Indication: Hypothyroidism
     Dosage: FREQUENCY TEXT: ONCE A DAY FROM MON-SAT ONLY START DATE TEXT: AT LEAST 15 YEARS AGO, FORM STRENGT...
     Route: 048
  2. SYNTHROID [Suspect]
     Active Substance: LEVOTHYROXINE SODIUM
     Indication: Hypothyroidism
     Route: 048
     Dates: start: 20231108

REACTIONS (3)
  - Osteoarthritis [Recovering/Resolving]
  - Expired product administered [Not Recovered/Not Resolved]
  - Osteoarthritis [Recovered/Resolved]
